FAERS Safety Report 10046005 (Version 4)
Quarter: 2014Q2

REPORT INFORMATION
  Report Type: Spontaneous
  Country: CA (occurrence: CA)
  Receive Date: 20140330
  Receipt Date: 20140410
  Transmission Date: 20141212
  Serious: Yes (Other)
  Sender: FDA-Public Use
  Company Number: CA-AMGEN-CANSP2014019578

PATIENT
  Age: 49 Year
  Sex: Female

DRUGS (5)
  1. NEUPOGEN [Suspect]
     Indication: PRODUCT USED FOR UNKNOWN INDICATION
     Dosage: UNK
     Route: 065
     Dates: end: 20140313
  2. EPREX [Suspect]
     Indication: PRODUCT USED FOR UNKNOWN INDICATION
     Dosage: UNK
     Route: 065
     Dates: end: 20140313
  3. PEGASYS [Suspect]
     Indication: CHRONIC HEPATITIS C
     Dosage: 0.5 ML PFS (180 MCG, 1 IN 1 WK)
     Route: 058
     Dates: start: 20140110, end: 20140313
  4. COPEGUS [Suspect]
     Indication: CHRONIC HEPATITIS C
     Dosage: 28 TABLET/WEEK, 800 MG, 1 IN 1 D
     Route: 048
     Dates: start: 20140110
  5. ADVAIR [Concomitant]
     Indication: ASTHMA
     Dosage: UNK

REACTIONS (1)
  - Platelet count decreased [Unknown]
